FAERS Safety Report 8144841-6 (Version None)
Quarter: 2012Q1

REPORT INFORMATION
  Report Type: 
  Country: None (occurrence: None)
  Receive Date: 20120217
  Receipt Date: 20120209
  Transmission Date: 20120608
  Serious: Yes (Hospitalization)
  Sender: FDA-Public Use
  Company Number: US-GLAXOSMITHKLINE-A0892604A

PATIENT
  Age: 62 Year
  Sex: Female
  Weight: 67.7 kg

DRUGS (6)
  1. LIPITOR [Concomitant]
  2. COZAAR [Concomitant]
  3. AVANDIA [Suspect]
     Indication: DIABETES MELLITUS
     Dosage: 8MG PER DAY
     Route: 048
     Dates: start: 20000101, end: 20060101
  4. GLUCOTROL [Concomitant]
  5. ENALAPRIL [Concomitant]
  6. ATENOLOL [Concomitant]

REACTIONS (4)
  - CORONARY ARTERY BYPASS [None]
  - PLEURAL EFFUSION [None]
  - TRANSIENT ISCHAEMIC ATTACK [None]
  - CARDIAC FAILURE CONGESTIVE [None]
